FAERS Safety Report 7001373-6 (Version None)
Quarter: 2010Q3

REPORT INFORMATION
  Report Type: 
  Country: None (occurrence: None)
  Receive Date: 20100920
  Receipt Date: 20100702
  Transmission Date: 20110219
  Serious: No
  Sender: FDA-Public Use
  Company Number: US-ASTRAZENECA-2010SE31089

PATIENT
  Age: 54 Year
  Sex: Female
  Weight: 65.8 kg

DRUGS (4)
  1. SEROQUEL XR [Suspect]
     Indication: DEPRESSION
     Route: 048
     Dates: start: 20080101
  2. SEROQUEL XR [Suspect]
     Indication: SLEEP DISORDER
     Route: 048
     Dates: start: 20080101
  3. AMLODIPINE [Concomitant]
  4. PRAVASTATIN [Concomitant]

REACTIONS (4)
  - DRUG DOSE OMISSION [None]
  - HERPES VIRUS INFECTION [None]
  - INTENTIONAL DRUG MISUSE [None]
  - NERVOUSNESS [None]
